FAERS Safety Report 25515389 (Version 7)
Quarter: 2025Q3

REPORT INFORMATION
  Report Type: Spontaneous
  Country: US (occurrence: US)
  Receive Date: 20250704
  Receipt Date: 20250813
  Transmission Date: 20251021
  Serious: Yes (Other)
  Sender: KARYOPHARM THERAPEUTICS
  Company Number: US-KARYOPHARM-2025KPT100432

PATIENT

DRUGS (17)
  1. SELINEXOR [Suspect]
     Active Substance: SELINEXOR
     Indication: Plasma cell myeloma
     Route: 048
     Dates: start: 20250624, end: 20250717
  2. ASPIRIN [Concomitant]
     Active Substance: ASPIRIN
  3. BACTRIM DS [Concomitant]
     Active Substance: SULFAMETHOXAZOLE\TRIMETHOPRIM
  4. CARVEDILOL [Concomitant]
     Active Substance: CARVEDILOL
  5. CYCLOBENZAPRINE [Concomitant]
     Active Substance: CYCLOBENZAPRINE
  6. DEXAMETHASONE [Concomitant]
     Active Substance: DEXAMETHASONE
  7. GABAPENTIN [Concomitant]
     Active Substance: GABAPENTIN
  8. NYSTOP [Concomitant]
     Active Substance: NYSTATIN
  9. ROSUVASTATIN CALCIUM [Concomitant]
     Active Substance: ROSUVASTATIN CALCIUM
  10. SYNTHROID [Concomitant]
     Active Substance: LEVOTHYROXINE SODIUM
  11. TORSEMIDE [Concomitant]
     Active Substance: TORSEMIDE
  12. TRAMADOL [Concomitant]
     Active Substance: TRAMADOL
  13. VALACYCLOVIR [Concomitant]
     Active Substance: VALACYCLOVIR HYDROCHLORIDE
  14. OMEPRAZOLE [Concomitant]
     Active Substance: OMEPRAZOLE
  15. ALBUTEROL\IPRATROPIUM [Concomitant]
     Active Substance: ALBUTEROL\IPRATROPIUM
  16. OLANZAPINE [Concomitant]
     Active Substance: OLANZAPINE
  17. FLEXERIL [Concomitant]
     Active Substance: CYCLOBENZAPRINE HYDROCHLORIDE

REACTIONS (18)
  - Asthenia [Unknown]
  - Lethargy [Unknown]
  - Pollakiuria [Unknown]
  - Pain in extremity [Unknown]
  - Hyperhidrosis [Not Recovered/Not Resolved]
  - Abdominal pain upper [Unknown]
  - Taste disorder [Unknown]
  - Gingival pain [Unknown]
  - Gingival discomfort [Unknown]
  - Dry mouth [Unknown]
  - Nausea [Not Recovered/Not Resolved]
  - Fall [Unknown]
  - Diarrhoea [Recovered/Resolved]
  - Weight decreased [Not Recovered/Not Resolved]
  - Decreased appetite [Unknown]
  - Insomnia [Unknown]
  - Fatigue [Not Recovered/Not Resolved]
  - Plasma cell myeloma [Unknown]

NARRATIVE: CASE EVENT DATE: 20250101
